FAERS Safety Report 12889477 (Version 9)
Quarter: 2020Q3

REPORT INFORMATION
  Report Type: Report from Study
  Country: FR (occurrence: FR)
  Receive Date: 20161027
  Receipt Date: 20180117
  Transmission Date: 20201105
  Serious: Yes (Life-Threatening, Hospitalization, Other)
  Sender: FDA-Public Use
  Company Number: FR-JNJFOC-20161014597

PATIENT
  Age: 65 Year
  Sex: Male
  Weight: 74 kg

DRUGS (26)
  1. THALIDOMIDE [Suspect]
     Active Substance: THALIDOMIDE
     Indication: PLASMA CELL MYELOMA
     Route: 048
     Dates: start: 2016
  2. TETRALISAL [Concomitant]
     Active Substance: LYMECYCLINE
     Indication: ROSACEA
     Dosage: FREQUENCY D1, D2, D8, D9, D15, D16, D22 AND 23
     Dates: start: 20160705, end: 20161020
  3. DUPHALAC [Concomitant]
     Active Substance: LACTULOSE
     Indication: CONSTIPATION
     Dosage: FREQUENCY D1, D2, D8, D9, D15, D16, D22 AND 23
     Dates: start: 20160922, end: 20161015
  4. ACUPAN [Concomitant]
     Active Substance: NEFOPAM HYDROCHLORIDE
     Indication: HEADACHE
     Dosage: FREQUENCY D1, D2, D8, D9, D15, D16, D22 AND 23
     Dates: start: 20161015, end: 20161015
  5. DEXAMETHASONE. [Suspect]
     Active Substance: DEXAMETHASONE
     Indication: PLASMA CELL MYELOMA
     Dosage: FREQUENCY D1,D2,D8,D9,D15,D16,D22 AND 23.
     Route: 042
     Dates: start: 20160912, end: 20161015
  6. SYMBICORT [Concomitant]
     Active Substance: BUDESONIDE\FORMOTEROL FUMARATE DIHYDRATE
     Indication: DYSPNOEA
     Dosage: FREQUENCY D1, D2, D8, D9, D15, D16, D22 AND 23
     Dates: start: 20160922, end: 20161015
  7. BACTRIM [Concomitant]
     Active Substance: SULFAMETHOXAZOLE\TRIMETHOPRIM
  8. VELCADE [Suspect]
     Active Substance: BORTEZOMIB
     Indication: PLASMA CELL MYELOMA
     Dosage: FREQUENCY D1, D4, D8, D11 PER MONTH
     Route: 058
     Dates: start: 20160919, end: 20161015
  9. FENOFIBRATE. [Concomitant]
     Active Substance: FENOFIBRATE
  10. DEXAMETHASONE. [Suspect]
     Active Substance: DEXAMETHASONE
     Indication: PLASMA CELL MYELOMA
     Route: 042
     Dates: start: 20161128
  11. KARDEGIC [Concomitant]
     Active Substance: ASPIRIN DL-LYSINE
  12. INEXIUM [Concomitant]
     Active Substance: ESOMEPRAZOLE
  13. VELCADE [Suspect]
     Active Substance: BORTEZOMIB
     Indication: PLASMA CELL MYELOMA
     Dosage: FREQUENCY D1, D4, D8, D11 EVERY 28 DAYS; MOST RECENT ON 13?OCT?2016
     Route: 058
     Dates: start: 20160912
  14. LASILIX [Concomitant]
     Active Substance: FUROSEMIDE
     Indication: OEDEMA PERIPHERAL
     Dosage: FREQUENCY D1, D2, D8, D9, D15, D16, D22 AND 23
     Dates: start: 20160922, end: 20161015
  15. LEDERFOLINE [Concomitant]
     Active Substance: LEUCOVORIN CALCIUM
  16. THALIDOMIDE [Suspect]
     Active Substance: THALIDOMIDE
     Indication: PLASMA CELL MYELOMA
     Dosage: MOST RECENT ALSO PROVIDED AS 15?OCT?2016
     Route: 048
     Dates: start: 20160912, end: 20161020
  17. DIAZEPAM. [Concomitant]
     Active Substance: DIAZEPAM
     Indication: ANXIETY
     Dosage: FREQUENCY D1, D2, D8, D9, D15, D16, D22 AND 23
     Dates: start: 2007, end: 20161015
  18. DARATUMUMAB [Suspect]
     Active Substance: DARATUMUMAB
     Indication: PLASMA CELL MYELOMA
     Route: 042
     Dates: start: 20160919, end: 20161015
  19. DARATUMUMAB [Suspect]
     Active Substance: DARATUMUMAB
     Indication: PLASMA CELL MYELOMA
     Dosage: MOST RECENT ON 10?OCT?2016
     Route: 042
     Dates: start: 20160912
  20. OXYNORMORO [Concomitant]
     Active Substance: OXYCODONE HYDROCHLORIDE
     Indication: PAIN
  21. ALLOPURINOL. [Concomitant]
     Active Substance: ALLOPURINOL
     Indication: PROPHYLAXIS
     Dosage: FREQUENCY D1, D2, D8, D9, D15, D16, D22 AND 23
     Dates: end: 20161015
  22. SIMVASTIN [Concomitant]
     Active Substance: SIMVASTATIN
     Indication: HYPERCHOLESTEROLAEMIA
     Dosage: FREQUENCY D1, D2, D8, D9, D15, D16, D22 AND 23
     Dates: start: 1996, end: 20161020
  23. VELCADE [Suspect]
     Active Substance: BORTEZOMIB
     Indication: PLASMA CELL MYELOMA
     Route: 058
     Dates: start: 20161128
  24. DEXAMETHASONE. [Suspect]
     Active Substance: DEXAMETHASONE
     Indication: PLASMA CELL MYELOMA
     Dosage: FREQUENCY D1, D2, D8, D9, D15, D16, D22 AND 23
     Route: 048
     Dates: start: 20160912, end: 20161011
  25. ROZAGEL [Concomitant]
     Indication: ROSACEA
     Dosage: FREQUENCY D1, D2, D8, D9, D15, D16, D22 AND 23
     Dates: start: 20160705, end: 20161020
  26. ZELITREX [Concomitant]
     Active Substance: VALACYCLOVIR HYDROCHLORIDE

REACTIONS (4)
  - Interstitial lung disease [Recovered/Resolved]
  - Acute pulmonary oedema [Recovered/Resolved]
  - Constipation [Recovered/Resolved]
  - Cardiac failure [Recovered/Resolved]

NARRATIVE: CASE EVENT DATE: 20160919
